FAERS Safety Report 16839055 (Version 1)
Quarter: 2019Q3

REPORT INFORMATION
  Report Type: Spontaneous
  Country: US (occurrence: US)
  Receive Date: 20190731
  Receipt Date: 20190731
  Transmission Date: 20191005
  Serious: No
  Sender: FDA-Public Use
  Company Number: None

PATIENT
  Age: 35 Year
  Sex: Female

DRUGS (1)
  1. ABILIFY MAINTENA [Suspect]
     Active Substance: ARIPIPRAZOLE
     Dates: start: 20150731

REACTIONS (3)
  - Blood cholesterol increased [None]
  - Blood glucose increased [None]
  - Weight increased [None]

NARRATIVE: CASE EVENT DATE: 20190731
